FAERS Safety Report 9293741 (Version 1)
Quarter: 2013Q2

REPORT INFORMATION
  Report Type: Spontaneous
  Country: US (occurrence: US)
  Receive Date: 20130516
  Receipt Date: 20130516
  Transmission Date: 20140414
  Serious: Yes (Other)
  Sender: FDA-Public Use
  Company Number: CHPA2013US008289

PATIENT
  Age: 55 Year
  Sex: Male

DRUGS (4)
  1. MAALOX UNKNOWN [Suspect]
     Indication: GASTROOESOPHAGEAL REFLUX DISEASE
     Dosage: 2 DF, PRN
     Route: 048
  2. MAALOX UNKNOWN [Suspect]
     Indication: COUGH
  3. MAALOX ANTACID/ANTIGAS MAX LIQ UNKNOWN [Suspect]
     Indication: GASTROOESOPHAGEAL REFLUX DISEASE
     Dosage: UNK, PRN
     Route: 048
  4. MAALOX ANTACID/ANTIGAS MAX LIQ UNKNOWN [Suspect]
     Indication: COUGH

REACTIONS (4)
  - Asthma [Not Recovered/Not Resolved]
  - Cough [Not Recovered/Not Resolved]
  - Therapeutic response unexpected [Unknown]
  - Off label use [Unknown]
